FAERS Safety Report 10014067 (Version 2)
Quarter: 2014Q2

REPORT INFORMATION
  Report Type: Spontaneous
  Country: US (occurrence: US)
  Receive Date: 20140317
  Receipt Date: 20140428
  Transmission Date: 20141212
  Serious: No
  Sender: FDA-Public Use
  Company Number: US-009507513-1403USA004816

PATIENT
  Age: 23 Year
  Sex: Male

DRUGS (4)
  1. PEGINTRON [Suspect]
     Indication: HEPATITIS C
     Dosage: REDIPEN, 0.5CC, ONCE A WEEK
     Route: 058
     Dates: start: 20140307
  2. REBETOL [Suspect]
     Indication: HEPATITIS C
     Dosage: 3 AM AND PM, TWICE DAILY
     Route: 048
     Dates: start: 20140307
  3. IBUPROFEN [Concomitant]
     Dosage: 1-2, PRN
     Route: 048
  4. SOVALDI [Concomitant]
     Dosage: 1, QD
     Route: 048

REACTIONS (4)
  - Feeling cold [Unknown]
  - Pyrexia [Unknown]
  - Dry mouth [Unknown]
  - Injection site bruising [Unknown]
